FAERS Safety Report 5361376-4 (Version None)
Quarter: 2007Q2

REPORT INFORMATION
  Report Type: 
  Country: None (occurrence: None)
  Receive Date: 20070612
  Receipt Date: 20070528
  Transmission Date: 20071010
  Serious: Yes (Hospitalization)
  Sender: FDA-Public Use
  Company Number: DSA_29988_2007

PATIENT
  Sex: Male

DRUGS (11)
  1. TAVOR /00273201/ (TAVOR) 1 MG [Suspect]
     Dosage: (1.5 MG 1X ORAL)
     Route: 048
     Dates: start: 20070527, end: 20070527
  2. ATOSIL /00133602/ (ATOSIL) 50MG [Suspect]
     Dosage: (50 MG 1X ORAL)
     Route: 048
     Dates: start: 20070527, end: 20070527
  3. DIAZEPAM [Suspect]
     Dosage: (4 MG 1X)
     Dates: start: 20070527, end: 20070527
  4. DOMPERIDONE (DOMPERIDONE) [Suspect]
     Dosage: (10 MG 1X )
     Dates: start: 20070527, end: 20070527
  5. GLIANIMON (GLIANIMON) 2 MG [Suspect]
     Dosage: (2 MG 1X ORAL)
     Route: 048
     Dates: start: 20070527, end: 20070527
  6. HALDOL [Suspect]
     Dosage: (10 MG 1X ORAL)
     Route: 048
  7. LAMICTAL [Suspect]
     Dosage: (50 MG 1X)
     Dates: start: 20070527, end: 20070527
  8. NEUROCIL /00038602/ (NEUROCIL) 100 MG [Suspect]
     Dosage: (100 MG 1X ORAL)
     Route: 048
     Dates: start: 20070527, end: 20070527
  9. ORFIRIL /00228501/ (ORIFIRIL) [Suspect]
     Dosage: (500 MG 1X)
     Dates: start: 20070527, end: 20070527
  10. RIVOTRIL (RIVOTRIL) [Suspect]
     Dosage: (1 MG 1X)
     Dates: start: 20070527, end: 20070527
  11. TEGRETAL (TEGRETAL) [Suspect]
     Dosage: (400 MG 1X)
     Dates: start: 20070527, end: 20070527

REACTIONS (3)
  - ACCIDENTAL OVERDOSE [None]
  - BLOOD PRESSURE SYSTOLIC DECREASED [None]
  - MEDICATION ERROR [None]
